FAERS Safety Report 8349521-X (Version None)
Quarter: 2012Q2

REPORT INFORMATION
  Report Type: 
  Country: None (occurrence: None)
  Receive Date: 20120510
  Receipt Date: 20120502
  Transmission Date: 20120825
  Serious: Yes (Other)
  Sender: FDA-Public Use
  Company Number: US-ASTRAZENECA-2012SE28341

PATIENT
  Age: 50 Year
  Sex: Female
  Weight: 127 kg

DRUGS (3)
  1. FLUOXETINE [Concomitant]
  2. NEXIUM [Suspect]
     Route: 048
  3. SEROQUEL XR [Suspect]
     Indication: BIPOLAR DISORDER
     Route: 048

REACTIONS (4)
  - HERNIA [None]
  - GASTRIC ULCER [None]
  - NAUSEA [None]
  - ABDOMINAL PAIN UPPER [None]
